FAERS Safety Report 7879227-2 (Version None)
Quarter: 2011Q4

REPORT INFORMATION
  Report Type: 
  Country: None (occurrence: None)
  Receive Date: 20111101
  Receipt Date: 20111031
  Transmission Date: 20120403
  Serious: Yes (Other)
  Sender: FDA-Public Use
  Company Number: US-PFIZER INC-2011266186

PATIENT
  Sex: Female
  Weight: 61.224 kg

DRUGS (2)
  1. CLONIDINE [Concomitant]
     Indication: PANIC ATTACK
     Dosage: UNK
  2. ZOLOFT [Suspect]
     Indication: ANXIETY
     Dosage: 50 MG, 2X/DAY
     Route: 048
     Dates: start: 20030101

REACTIONS (1)
  - TONSILLAR INFLAMMATION [None]
